FAERS Safety Report 18050356 (Version 1)
Quarter: 2020Q3

REPORT INFORMATION
  Report Type: Spontaneous
  Country: US (occurrence: US)
  Receive Date: 20200721
  Receipt Date: 20200721
  Transmission Date: 20201103
  Serious: No
  Sender: FDA-Public Use
  Company Number: US-009507513-2007USA005247

PATIENT
  Sex: Female

DRUGS (7)
  1. MENOPUR [Concomitant]
     Active Substance: FOLLITROPIN\LUTEINIZING HORMONE
  2. GONAL?F [Concomitant]
     Active Substance: FOLLITROPIN
  3. GANIRELIX ACETATE INJECTION [Suspect]
     Active Substance: GANIRELIX ACETATE
     Dosage: BID
  4. PREGNYL [Suspect]
     Active Substance: CHORIOGONADOTROPIN ALFA
     Indication: INFERTILITY FEMALE
     Dosage: STRENGTH: 10000 UNIT MDV
     Route: 030
     Dates: start: 20200618, end: 2020
  5. AZITHROMYCIN ANHYDROUS. [Concomitant]
     Active Substance: AZITHROMYCIN ANHYDROUS
  6. ENDOMETRIL [Concomitant]
  7. LEUPROLIDE [Concomitant]
     Active Substance: LEUPROLIDE

REACTIONS (2)
  - Ill-defined disorder [Unknown]
  - Product use issue [Unknown]
